FAERS Safety Report 4370216-1 (Version None)
Quarter: 2004Q2

REPORT INFORMATION
  Report Type: 
  Country: None (occurrence: None)
  Receive Date: 20040603
  Receipt Date: 20040415
  Transmission Date: 20050107
  Serious: No
  Sender: FDA-Public Use
  Company Number: US-BRISTOL-MYERS SQUIBB COMPANY-12561361

PATIENT
  Age: 38 Year
  Sex: Female
  Weight: 104 kg

DRUGS (4)
  1. ABILIFY [Suspect]
     Indication: BIPOLAR DISORDER
     Route: 048
     Dates: start: 20040319
  2. DEPAKOTE [Concomitant]
  3. CELEXA [Concomitant]
  4. KLONOPIN [Concomitant]

REACTIONS (4)
  - DIZZINESS [None]
  - FEELING HOT [None]
  - HEADACHE [None]
  - INSOMNIA [None]
